FAERS Safety Report 20174804 (Version 1)
Quarter: 2021Q4

REPORT INFORMATION
  Report Type: Spontaneous
  Country: JP (occurrence: JP)
  Receive Date: 20211213
  Receipt Date: 20211213
  Transmission Date: 20220303
  Serious: Yes (Other)
  Sender: FDA-Public Use
  Company Number: JP-GILEAD-2021-0559349

PATIENT
  Age: 28 Year
  Sex: Female
  Weight: 27 kg

DRUGS (4)
  1. AMPHOTERICIN B [Suspect]
     Active Substance: AMPHOTERICIN B
     Indication: Candida infection
     Route: 042
  2. FOSFLUCONAZOLE [Suspect]
     Active Substance: FOSFLUCONAZOLE
     Indication: Candida infection
     Route: 042
  3. FLUCONAZOLE [Suspect]
     Active Substance: FLUCONAZOLE
     Indication: Candida infection
     Route: 048
  4. FLUCYTOSINE [Suspect]
     Active Substance: FLUCYTOSINE
     Indication: Candida infection
     Route: 048

REACTIONS (1)
  - Drug ineffective [Unknown]
